FAERS Safety Report 12072347 (Version 1)
Quarter: 2016Q1

REPORT INFORMATION
  Report Type: Spontaneous
  Country: US (occurrence: None)
  Receive Date: 20160211
  Receipt Date: 20160211
  Transmission Date: 20160526
  Serious: Yes (Other)
  Sender: FDA-Public Use
  Company Number: None

PATIENT
  Age: 46 Year
  Sex: Female
  Weight: 90.72 kg

DRUGS (9)
  1. LISINOPRIL. [Concomitant]
     Active Substance: LISINOPRIL
  2. ZOLOFT [Concomitant]
     Active Substance: SERTRALINE HYDROCHLORIDE
  3. DIAZEPAM. [Concomitant]
     Active Substance: DIAZEPAM
  4. CLARITIN [Concomitant]
     Active Substance: LORATADINE
  5. C-PAP IBUPROPHEN [Concomitant]
  6. MULTIVITAMIN [Concomitant]
     Active Substance: VITAMINS
  7. LATUDA [Suspect]
     Active Substance: LURASIDONE HYDROCHLORIDE
     Indication: AFFECTIVE DISORDER
     Route: 048
  8. PSEUDOPHEDRINE [Concomitant]
     Active Substance: PSEUDOEPHEDRINE
  9. SALINE NASAL RINSE [Concomitant]

REACTIONS (4)
  - Trigger finger [None]
  - Pain [None]
  - Swelling [None]
  - Inflammation [None]

NARRATIVE: CASE EVENT DATE: 20150908
